FAERS Safety Report 15794485 (Version 2)
Quarter: 2019Q1

REPORT INFORMATION
  Report Type: Report from Study
  Country: IT (occurrence: IT)
  Receive Date: 20190107
  Receipt Date: 20190110
  Transmission Date: 20190417
  Serious: Yes (Life-Threatening, Hospitalization, Other)
  Sender: FDA-Public Use
  Company Number: IT-BRISTOL-MYERS SQUIBB COMPANY-BMS-2019-000493

PATIENT
  Age: 65 Year
  Sex: Male

DRUGS (1)
  1. NIVOLUMAB [Suspect]
     Active Substance: NIVOLUMAB
     Indication: HYPOPHARYNGEAL NEOPLASM
     Dosage: 240 MG, Q2WK
     Route: 042
     Dates: start: 20180619, end: 20190102

REACTIONS (3)
  - Pneumonitis [Recovered/Resolved]
  - Pneumonia aspiration [Unknown]
  - Performance status decreased [Recovered/Resolved]

NARRATIVE: CASE EVENT DATE: 20190102
